FAERS Safety Report 9474300 (Version 1)
Quarter: 2013Q3

REPORT INFORMATION
  Report Type: Report from Study
  Country: US (occurrence: US)
  Receive Date: 20130823
  Receipt Date: 20130823
  Transmission Date: 20140515
  Serious: Yes (Hospitalization, Other)
  Sender: FDA-Public Use
  Company Number: US-ABBOTT-13P-163-1134032-00

PATIENT
  Age: 59 Year
  Sex: Female
  Weight: 56.75 kg

DRUGS (4)
  1. HUMIRA [Suspect]
     Indication: CROHN^S DISEASE
     Dates: start: 2004, end: 20130716
  2. HUMIRA [Suspect]
     Dates: start: 20130716
  3. COUMADIN [Concomitant]
     Indication: THROMBOSIS
     Dates: start: 1980
  4. VITAMIN D [Concomitant]
     Indication: PRODUCT USED FOR UNKNOWN INDICATION

REACTIONS (10)
  - Fistula discharge [Recovering/Resolving]
  - Crohn^s disease [Recovering/Resolving]
  - Vomiting [Recovered/Resolved]
  - Abscess intestinal [Recovering/Resolving]
  - Abscess intestinal [Recovering/Resolving]
  - Abdominal pain [Recovered/Resolved]
  - Weight decreased [Unknown]
  - Gastric disorder [Unknown]
  - Activated partial thromboplastin time abnormal [Unknown]
  - Fistula [Recovering/Resolving]
